FAERS Safety Report 9551511 (Version 1)
Quarter: 2013Q3

REPORT INFORMATION
  Report Type: Report from Study
  Country: US (occurrence: US)
  Receive Date: 20130925
  Receipt Date: 20130925
  Transmission Date: 20140515
  Serious: Yes (Other)
  Sender: FDA-Public Use
  Company Number: US-ASTRAZENECA-2013SE69819

PATIENT
  Sex: Male

DRUGS (2)
  1. NEXIUM [Suspect]
     Indication: GASTRIC DISORDER
     Route: 048
     Dates: start: 2002
  2. NEXIUM [Suspect]
     Indication: OESOPHAGEAL DISORDER
     Route: 048
     Dates: start: 2002

REACTIONS (2)
  - Device occlusion [Unknown]
  - Intentional drug misuse [Unknown]
